FAERS Safety Report 7941898-X (Version None)
Quarter: 2011Q4

REPORT INFORMATION
  Report Type: 
  Country: None (occurrence: None)
  Receive Date: 20111128
  Receipt Date: 20111107
  Transmission Date: 20120403
  Serious: Yes (Other)
  Sender: FDA-Public Use
  Company Number: US-MEDIMMUNE-MEDI-0013781

PATIENT
  Sex: Female
  Weight: 1.855 kg

DRUGS (4)
  1. ACTIGALL [Concomitant]
  2. SYNAGIS [Suspect]
     Dates: start: 20111021, end: 20111021
  3. POLY-VI-SOL [Concomitant]
     Indication: VITAMIN SUPPLEMENTATION
  4. IRON [Concomitant]

REACTIONS (1)
  - CONVULSION [None]
